FAERS Safety Report 4712265-7 (Version None)
Quarter: 2005Q3

REPORT INFORMATION
  Report Type: 
  Country: None (occurrence: None)
  Receive Date: 20050712
  Receipt Date: 20050706
  Transmission Date: 20060218
  Serious: Yes (Life-Threatening)
  Sender: FDA-Public Use
  Company Number: US-GLAXOSMITHKLINE-B0387064A

PATIENT
  Sex: Male

DRUGS (3)
  1. PAXIL [Suspect]
     Dosage: 1270MG PER DAY
     Route: 048
     Dates: start: 20050706, end: 20050706
  2. SILECE [Concomitant]
     Route: 048
  3. ZYPREXA [Concomitant]
     Route: 048

REACTIONS (3)
  - BLOOD PRESSURE DECREASED [None]
  - COMA [None]
  - RESPIRATORY FAILURE [None]
